FAERS Safety Report 4360185-2 (Version None)
Quarter: 2004Q2

REPORT INFORMATION
  Report Type: 
  Country: None (occurrence: None)
  Receive Date: 20040513
  Receipt Date: 20040430
  Transmission Date: 20050107
  Serious: Yes (Life-Threatening)
  Sender: FDA-Public Use
  Company Number: 04P-163-0259517-00

PATIENT
  Age: 3 Year
  Sex: Male

DRUGS (5)
  1. SEVOFLURANE [Suspect]
     Indication: INDUCTION AND MAINTENANCE OF ANAESTHESIA
     Dosage: 6 %, 1 IN 1 D, INHALATION
     Route: 055
     Dates: start: 20040427, end: 20040427
  2. OXYGEN [Concomitant]
  3. NITROUS OXIDE [Concomitant]
  4. PROPOFOL [Concomitant]
  5. ROCURONIUM [Concomitant]

REACTIONS (5)
  - BRADYCARDIA [None]
  - LARYNGOSPASM [None]
  - LIGHT ANAESTHESIA [None]
  - OXYGEN SATURATION DECREASED [None]
  - PROCEDURAL COMPLICATION [None]
